FAERS Safety Report 9236220 (Version 1)
Quarter: 2013Q2

REPORT INFORMATION
  Report Type: Spontaneous
  Country: FR (occurrence: FR)
  Receive Date: 20130417
  Receipt Date: 20130417
  Transmission Date: 20140414
  Serious: Yes (Hospitalization)
  Sender: FDA-Public Use
  Company Number: FR-PFIZER INC-2013116918

PATIENT
  Age: 58 Year
  Sex: Male

DRUGS (7)
  1. SOLU-MEDROL [Suspect]
     Dosage: 120 MG, CYCLIC
     Route: 042
  2. FLUOROURACIL [Suspect]
     Indication: ADENOCARCINOMA
     Dosage: 5050 MG, CYCLIC
     Route: 042
  3. FLUOROURACIL [Suspect]
     Indication: NEOPLASM MALIGNANT
  4. IRINOTECAN HCL [Suspect]
     Indication: ADENOCARCINOMA
     Dosage: 320 MG, CYCLIC
     Route: 042
  5. IRINOTECAN HCL [Suspect]
     Indication: NEOPLASM MALIGNANT
  6. AVASTIN [Suspect]
     Indication: ADENOCARCINOMA
     Dosage: 500 MG, CYCLIC
     Route: 042
  7. AVASTIN [Suspect]
     Indication: NEOPLASM MALIGNANT

REACTIONS (1)
  - Paraesthesia [Unknown]
